FAERS Safety Report 5433239-7 (Version None)
Quarter: 2007Q3

REPORT INFORMATION
  Report Type: 
  Country: None (occurrence: None)
  Receive Date: 20070831
  Receipt Date: 20070619
  Transmission Date: 20080115
  Serious: No
  Sender: FDA-Public Use
  Company Number: A0657075A

PATIENT
  Age: 43 Year
  Sex: Female

DRUGS (1)
  1. ALLI [Suspect]
     Route: 048
     Dates: start: 20070617, end: 20070618

REACTIONS (4)
  - DIARRHOEA [None]
  - DYSPNOEA [None]
  - NAUSEA [None]
  - VOMITING [None]
